FAERS Safety Report 8780886 (Version 1)
Quarter: 2012Q4

REPORT INFORMATION
  Report Type: 
  Country: US (occurrence: US)
  Receive Date: 20120913
  Receipt Date: 20120913
  Transmission Date: 20130627
  Serious: No
  Sender: FDA-Public Use
  Company Number: US-JNJFOC-20120815217

PATIENT
  Age: 85 Year
  Sex: Female
  Weight: 72.58 kg

DRUGS (1)
  1. FENTANYL TRANSDERMAL SYSTEM [Suspect]
     Indication: BACK PAIN
     Route: 062
     Dates: start: 20120828

REACTIONS (2)
  - Drug prescribing error [Recovered/Resolved]
  - Therapy naive [None]
